FAERS Safety Report 8579200-5 (Version None)
Quarter: 2012Q3

REPORT INFORMATION
  Report Type: 
  Country: None (occurrence: None)
  Receive Date: 20120808
  Receipt Date: 20120724
  Transmission Date: 20120928
  Serious: Yes (Hospitalization)
  Sender: FDA-Public Use
  Company Number: IT-ROCHE-1094193

PATIENT
  Sex: Female

DRUGS (4)
  1. LOSARTAN POTASSIUM [Suspect]
     Indication: HYPERTENSION
     Route: 048
     Dates: start: 20110601, end: 20120608
  2. ACTONEL [Concomitant]
  3. KETOPROFEN [Suspect]
     Indication: HEADACHE
     Route: 048
     Dates: start: 20120530, end: 20120608
  4. TORSEMIDE [Suspect]
     Indication: HYPERTENSION
     Route: 048
     Dates: start: 20120601, end: 20120608

REACTIONS (1)
  - RENAL FAILURE CHRONIC [None]
